FAERS Safety Report 19523735 (Version 1)
Quarter: 2021Q3

REPORT INFORMATION
  Report Type: Spontaneous
  Country: US (occurrence: US)
  Receive Date: 20210712
  Receipt Date: 20210712
  Transmission Date: 20211014
  Serious: Yes (Other)
  Sender: FDA-Public Use
  Company Number: US-BRISTOL-MYERS SQUIBB COMPANY-BMS-2021-063961

PATIENT
  Age: 56 Year
  Sex: Female
  Weight: 58.05 kg

DRUGS (9)
  1. KENALOG?40 [Suspect]
     Active Substance: TRIAMCINOLONE ACETONIDE
     Dosage: UNK
     Route: 065
     Dates: start: 20200724
  2. XANAX [Concomitant]
     Active Substance: ALPRAZOLAM
     Indication: PRODUCT USED FOR UNKNOWN INDICATION
     Route: 065
  3. COLLAGEN [Concomitant]
     Active Substance: COLLAGEN
     Indication: PRODUCT USED FOR UNKNOWN INDICATION
     Route: 065
  4. VITAMINS NOS [Concomitant]
     Active Substance: VITAMINS
     Indication: PRODUCT USED FOR UNKNOWN INDICATION
     Route: 065
  5. KENALOG?40 [Suspect]
     Active Substance: TRIAMCINOLONE ACETONIDE
     Dosage: UNK
     Route: 008
     Dates: start: 20200729
  6. LIQUID VITAMIN B12 [Concomitant]
     Indication: PRODUCT USED FOR UNKNOWN INDICATION
     Route: 065
  7. KENALOG?40 [Suspect]
     Active Substance: TRIAMCINOLONE ACETONIDE
     Indication: PRODUCT USED FOR UNKNOWN INDICATION
     Dosage: 4 OR MORE
     Route: 065
     Dates: start: 2020
  8. KENALOG?40 [Suspect]
     Active Substance: TRIAMCINOLONE ACETONIDE
     Dosage: UNK
     Route: 065
     Dates: start: 202010
  9. KENALOG?40 [Suspect]
     Active Substance: TRIAMCINOLONE ACETONIDE
     Dosage: UNK
     Route: 065
     Dates: start: 20200422

REACTIONS (26)
  - Rotator cuff syndrome [Unknown]
  - Monoplegia [Unknown]
  - Cerebrovascular accident [Unknown]
  - Tendon injury [Unknown]
  - Weight decreased [Unknown]
  - Malnutrition [Unknown]
  - Skin atrophy [Unknown]
  - Anaphylactic shock [Unknown]
  - Cerebral haemorrhage [Unknown]
  - Pain [Unknown]
  - Cough [Unknown]
  - Intentional product use issue [Unknown]
  - Arthralgia [Unknown]
  - Lumbar hernia [Unknown]
  - Blood pressure increased [Unknown]
  - Ecchymosis [Unknown]
  - Rash [Unknown]
  - Skin haemorrhage [Unknown]
  - Muscle spasms [Unknown]
  - Overdose [Unknown]
  - Ear haemorrhage [Unknown]
  - Flatulence [Unknown]
  - Contusion [Unknown]
  - Fall [Unknown]
  - Hernia [Unknown]
  - Spinal pain [Unknown]
